FAERS Safety Report 9645363 (Version 2)
Quarter: 2013Q4

REPORT INFORMATION
  Report Type: Spontaneous
  Country: US (occurrence: US)
  Receive Date: 20131025
  Receipt Date: 20131223
  Transmission Date: 20140711
  Serious: No
  Sender: FDA-Public Use
  Company Number: US-ELI_LILLY_AND_COMPANY-US201310005191

PATIENT
  Sex: Male

DRUGS (2)
  1. HUMALOG LISPRO [Suspect]
     Indication: DIABETES MELLITUS
     Dosage: 15 U, BID
     Route: 065
  2. HUMALOG LISPRO [Suspect]
     Dosage: 12 U, QD
     Route: 065

REACTIONS (1)
  - Incorrect dose administered [Unknown]
